FAERS Safety Report 8520634-2 (Version None)
Quarter: 2012Q3

REPORT INFORMATION
  Report Type: 
  Country: None (occurrence: None)
  Receive Date: 20120706
  Receipt Date: 20120621
  Transmission Date: 20120928
  Serious: Yes (Disabling)
  Sender: FDA-Public Use
  Company Number: 2012MA006918

PATIENT
  Age: 56 Year
  Sex: Female
  Weight: 47.1741 kg

DRUGS (1)
  1. MICONAZOLE NITRATE [Suspect]
     Indication: PRURITUS
     Dosage: 2 %;X1;VAG
     Route: 067
     Dates: start: 20120523, end: 20120524

REACTIONS (2)
  - APPLICATION SITE PAIN [None]
  - ABASIA [None]
